FAERS Safety Report 8602340 (Version 6)
Quarter: 2013Q2

REPORT INFORMATION
  Report Type: Spontaneous
  Country: US (occurrence: US)
  Receive Date: 20120607
  Receipt Date: 20130419
  Transmission Date: 20140414
  Serious: No
  Sender: FDA-Public Use
  Company Number: US-PFIZER INC-2012132319

PATIENT
  Age: 63 Year
  Sex: Male
  Weight: 156 kg

DRUGS (3)
  1. GENOTROPIN [Suspect]
     Indication: METABOLIC DISORDER
     Dosage: UNK, 1X/DAY
     Route: 058
     Dates: start: 201205
  2. GENOTROPIN [Suspect]
     Indication: BLOOD GLUCOSE INCREASED
     Dosage: UNK, 1X/DAY
     Dates: start: 2012, end: 2013
  3. INSULIN [Concomitant]
     Dosage: UNK, 3X/DAY

REACTIONS (4)
  - Injection site haemorrhage [Unknown]
  - Circumstance or information capable of leading to medication error [Unknown]
  - Off label use [Unknown]
  - Drug ineffective for unapproved indication [Unknown]
